FAERS Safety Report 20645432 (Version 3)
Quarter: 2022Q2

REPORT INFORMATION
  Report Type: Spontaneous
  Country: US (occurrence: US)
  Receive Date: 20220328
  Receipt Date: 20220420
  Transmission Date: 20220721
  Serious: No
  Sender: FDA-Public Use
  Company Number: US-PFIZER INC-202200452321

PATIENT
  Age: 60 Year
  Sex: Male
  Weight: 122.45 kg

DRUGS (1)
  1. IBRANCE [Suspect]
     Active Substance: PALBOCICLIB
     Indication: Neoplasm malignant
     Dosage: 125 MG

REACTIONS (4)
  - Neoplasm progression [Not Recovered/Not Resolved]
  - Post-traumatic stress disorder [Unknown]
  - Pain in extremity [Unknown]
  - Bone pain [Unknown]
